FAERS Safety Report 9052568 (Version 4)
Quarter: 2013Q3

REPORT INFORMATION
  Report Type: Spontaneous
  Country: JP (occurrence: JP)
  Receive Date: 20130207
  Receipt Date: 20130823
  Transmission Date: 20140515
  Serious: Yes (Hospitalization, Other)
  Sender: FDA-Public Use
  Company Number: JP-MPIJNJ-2013-00925

PATIENT
  Sex: 0

DRUGS (12)
  1. VELCADE [Suspect]
     Indication: PLASMA CELL MYELOMA
     Dosage: 1.3 MG/M2, UNK
     Route: 058
     Dates: start: 20121217, end: 20121217
  2. VELCADE [Suspect]
     Dosage: 1.04 MG/M2, UNK
     Route: 058
     Dates: start: 20130115, end: 20130115
  3. TENORMIN [Concomitant]
     Dosage: 25 MG, UNK
     Route: 048
     Dates: end: 20121221
  4. LOCHOL                             /01224501/ [Concomitant]
     Dosage: 30 MG, UNK
     Route: 048
     Dates: end: 20121221
  5. ZYLORIC                            /00003301/ [Concomitant]
     Dosage: 200 MG, UNK
     Route: 048
     Dates: start: 20121208
  6. FAMOTIDINE [Concomitant]
     Dosage: 10 MG, UNK
     Route: 048
     Dates: start: 20121210
  7. ACICLOVIR [Concomitant]
     Dosage: 200 MG, UNK
     Route: 048
     Dates: start: 20121214
  8. BAKTAR [Concomitant]
     Dosage: 4 DF, UNK
     Route: 048
     Dates: start: 20121214
  9. MAGMITT [Concomitant]
     Dosage: UNK
     Route: 048
     Dates: start: 20121217
  10. LAXOBERON [Concomitant]
     Dosage: UNK
     Route: 048
     Dates: start: 20121217
  11. ALOSENN                            /00476901/ [Concomitant]
     Route: 048
  12. DEXART [Concomitant]
     Dosage: 16.5 MG, UNK
     Route: 042
     Dates: start: 20121211

REACTIONS (4)
  - Inappropriate antidiuretic hormone secretion [Unknown]
  - Hyponatraemia [Recovering/Resolving]
  - Constipation [Unknown]
  - Vomiting [Recovered/Resolved]
